FAERS Safety Report 5088460-7 (Version None)
Quarter: 2006Q3

REPORT INFORMATION
  Report Type: 
  Country: None (occurrence: None)
  Receive Date: 20060823
  Receipt Date: 20060823
  Transmission Date: 20061208
  Serious: No
  Sender: FDA-Public Use
  Company Number: None

PATIENT
  Sex: Female
  Weight: 63.05 kg

DRUGS (1)
  1. VISIPAQUE [Suspect]
     Indication: CATHETERISATION CARDIAC

REACTIONS (2)
  - CARDIAC PROCEDURE COMPLICATION [None]
  - CHILLS [None]
